FAERS Safety Report 21595945 (Version 1)
Quarter: 2022Q4

REPORT INFORMATION
  Report Type: Spontaneous
  Country: GB (occurrence: GB)
  Receive Date: 20221115
  Receipt Date: 20221115
  Transmission Date: 20230113
  Serious: Yes (Other)
  Sender: FDA-Public Use
  Company Number: None

PATIENT
  Age: 22 Year
  Sex: Male
  Weight: 127.0 kg

DRUGS (2)
  1. OMEPRAZOLE [Suspect]
     Active Substance: OMEPRAZOLE
     Route: 048
     Dates: start: 20221003
  2. POTASSIUM BICARBONATE\SODIUM ALGINATE [Concomitant]
     Active Substance: POTASSIUM BICARBONATE\SODIUM ALGINATE
     Dosage: WITH MEALS AND BEFORE BED
     Dates: start: 20221003

REACTIONS (2)
  - Ocular hyperaemia [Recovered/Resolved]
  - Eye swelling [Recovered/Resolved]
